FAERS Safety Report 10611204 (Version 1)
Quarter: 2014Q4

REPORT INFORMATION
  Report Type: Spontaneous
  Country: TR (occurrence: TR)
  Receive Date: 20141126
  Receipt Date: 20141126
  Transmission Date: 20150529
  Serious: Yes (Other)
  Sender: FDA-Public Use
  Company Number: TR-BAYER-2014-170861

PATIENT

DRUGS (1)
  1. NEXAVAR [Suspect]
     Active Substance: SORAFENIB
     Indication: OSTEOSARCOMA
     Dosage: UNK

REACTIONS (3)
  - Pulmonary vasculitis [None]
  - Product use issue [None]
  - Pulmonary mass [None]
